FAERS Safety Report 4373789-8 (Version None)
Quarter: 2004Q2

REPORT INFORMATION
  Report Type: 
  Country: None (occurrence: None)
  Receive Date: 20040602
  Receipt Date: 20040204
  Transmission Date: 20050107
  Serious: Yes (Hospitalization)
  Sender: FDA-Public Use
  Company Number: 2004197527US

PATIENT
  Age: 80 Year
  Sex: Male

DRUGS (1)
  1. ALDACTONE [Suspect]

REACTIONS (1)
  - RENAL FAILURE [None]
